FAERS Safety Report 9788487 (Version 2)
Quarter: 2014Q1

REPORT INFORMATION
  Report Type: Spontaneous
  Country: US (occurrence: US)
  Receive Date: 20131230
  Receipt Date: 20140224
  Transmission Date: 20141002
  Serious: Yes (Other)
  Sender: FDA-Public Use
  Company Number: US-GILEAD-2013-0090906

PATIENT
  Sex: Male

DRUGS (2)
  1. LETAIRIS [Suspect]
     Indication: PULMONARY HYPERTENSION
     Dosage: 10 MG, QD
     Route: 048
     Dates: start: 20120228
  2. LETAIRIS [Suspect]
     Indication: LIVER DISORDER

REACTIONS (6)
  - Loss of consciousness [Unknown]
  - Pulmonary hypertension [Unknown]
  - Catheterisation cardiac [Unknown]
  - Pulmonary arterial pressure increased [Unknown]
  - Asthenia [Unknown]
  - Fatigue [Unknown]
